FAERS Safety Report 8546963-4 (Version None)
Quarter: 2012Q3

REPORT INFORMATION
  Report Type: 
  Country: None (occurrence: None)
  Receive Date: 20120727
  Receipt Date: 20120305
  Transmission Date: 20120928
  Serious: No
  Sender: FDA-Public Use
  Company Number: US-ASTRAZENECA-2012SE15089

PATIENT
  Age: 35 Year
  Sex: Female
  Weight: 43.5 kg

DRUGS (3)
  1. SEROQUEL XR [Suspect]
     Indication: BIPOLAR DISORDER
     Route: 048
     Dates: start: 20070607
  2. SEROQUEL XR [Suspect]
     Indication: MAJOR DEPRESSION
     Route: 048
     Dates: start: 20070607
  3. SPRINTEC [Concomitant]
     Indication: ORAL CONTRACEPTION

REACTIONS (7)
  - AFFECT LABILITY [None]
  - DEPRESSED MOOD [None]
  - PANIC ATTACK [None]
  - INSOMNIA [None]
  - POOR QUALITY SLEEP [None]
  - WEIGHT DECREASED [None]
  - DRUG DOSE OMISSION [None]
